FAERS Safety Report 12535544 (Version 1)
Quarter: 2016Q3

REPORT INFORMATION
  Report Type: Spontaneous
  Country: BR (occurrence: BR)
  Receive Date: 20160707
  Receipt Date: 20160707
  Transmission Date: 20161109
  Serious: Yes (Other)
  Sender: FDA-Public Use
  Company Number: BR-ROCHE-1787717

PATIENT
  Age: 80 Year
  Sex: Female

DRUGS (1)
  1. RIVOTRIL [Suspect]
     Active Substance: CLONAZEPAM
     Indication: PRODUCT USED FOR UNKNOWN INDICATION
     Dosage: AT NIGHT
     Route: 065
     Dates: start: 20160615

REACTIONS (12)
  - Ill-defined disorder [Not Recovered/Not Resolved]
  - Skin discolouration [Unknown]
  - Fall [Unknown]
  - Ocular hyperaemia [Unknown]
  - Pruritus generalised [Not Recovered/Not Resolved]
  - Wound [Unknown]
  - Decreased appetite [Not Recovered/Not Resolved]
  - Glaucoma [Unknown]
  - Malaise [Not Recovered/Not Resolved]
  - Pain in extremity [Unknown]
  - Arthralgia [Not Recovered/Not Resolved]
  - Dizziness [Not Recovered/Not Resolved]
